FAERS Safety Report 17303039 (Version 1)
Quarter: 2020Q1

REPORT INFORMATION
  Report Type: Report from Study
  Country: US (occurrence: US)
  Receive Date: 20200122
  Receipt Date: 20200122
  Transmission Date: 20200409
  Serious: Yes (Death)
  Sender: FDA-Public Use
  Company Number: US-TAIHO ONCOLOGY  INC-EU-2020-00118

PATIENT
  Age: 57 Year
  Sex: Female

DRUGS (11)
  1. LONSURF [Suspect]
     Active Substance: TIPIRACIL HYDROCHLORIDE\TRIFLURIDINE
     Indication: ILL-DEFINED DISORDER
     Dosage: CURRENT CYCLE UNKNOWN
     Route: 048
  2. MORPHINE [Concomitant]
     Active Substance: MORPHINE
  3. HYDROMORPHONE [Concomitant]
     Active Substance: HYDROMORPHONE
  4. DEXAMETHASONE. [Concomitant]
     Active Substance: DEXAMETHASONE
  5. LORAZEPAM. [Concomitant]
     Active Substance: LORAZEPAM
  6. ANUCORT-HC [Concomitant]
     Active Substance: HYDROCORTISONE ACETATE
  7. LIDOCAINE. [Concomitant]
     Active Substance: LIDOCAINE
  8. PANTOPRAZOLE [Concomitant]
     Active Substance: PANTOPRAZOLE
  9. DIAZEPAM. [Concomitant]
     Active Substance: DIAZEPAM
  10. TRAMADOL. [Concomitant]
     Active Substance: TRAMADOL
  11. PROCHLORPERAZINE. [Concomitant]
     Active Substance: PROCHLORPERAZINE

REACTIONS (1)
  - Death [Fatal]

NARRATIVE: CASE EVENT DATE: 20200107
